FAERS Safety Report 8923095 (Version 2)
Quarter: 2012Q4

REPORT INFORMATION
  Report Type: Report from Study
  Country: CA (occurrence: CA)
  Receive Date: 20121123
  Receipt Date: 20121130
  Transmission Date: 20130627
  Serious: Yes (Life-Threatening, Hospitalization)
  Sender: FDA-Public Use
  Company Number: CA-PFIZER INC-2012287935

PATIENT
  Age: 64 Year
  Sex: Female
  Weight: 91.4 kg

DRUGS (5)
  1. EXEMESTANE [Suspect]
     Indication: BREAST CANCER
     Dosage: 25 mg, 1x/day
     Route: 048
     Dates: start: 20111019
  2. COBALT-IRBESARTAN HCTZ [Concomitant]
     Indication: HYPERTENSION
     Dosage: UNK
     Dates: start: 201110
  3. PMS-DESONIDE [Concomitant]
     Indication: ECZEMA
     Dosage: UNK
     Dates: start: 200908
  4. NOVO-MELOXICAM [Concomitant]
     Indication: ARTHRITIS
     Dosage: UNK
     Dates: start: 2007
  5. PREMARIN [Concomitant]
     Indication: VAGINAL DRYNESS
     Dosage: UNK
     Dates: start: 200906

REACTIONS (1)
  - Thyroid cancer [Recovered/Resolved]
